FAERS Safety Report 9892845 (Version 1)
Quarter: 2014Q1

REPORT INFORMATION
  Report Type: Spontaneous
  Country: GB (occurrence: GB)
  Receive Date: 20140213
  Receipt Date: 20140213
  Transmission Date: 20141002
  Serious: Yes (Hospitalization)
  Sender: FDA-Public Use
  Company Number: GB-AMGEN-GBRSP2014009320

PATIENT
  Age: 92 Year
  Sex: Female

DRUGS (1)
  1. ARANESP [Suspect]
     Indication: RENAL DISORDER
     Dosage: 40 MUG, Q2WK
     Route: 065
     Dates: start: 20131004

REACTIONS (2)
  - Wrist fracture [Unknown]
  - Fall [Unknown]
